FAERS Safety Report 7041605-1 (Version None)
Quarter: 2010Q4

REPORT INFORMATION
  Report Type: 
  Country: None (occurrence: None)
  Receive Date: 20101013
  Receipt Date: 20100525
  Transmission Date: 20110411
  Serious: No
  Sender: FDA-Public Use
  Company Number: US-ASTRAZENECA-2010SE24018

PATIENT
  Age: 59 Year
  Sex: Female

DRUGS (3)
  1. SYMBICORT [Suspect]
     Indication: CHRONIC OBSTRUCTIVE PULMONARY DISEASE
     Dosage: 2 PUFFS 320 MG BID
     Route: 055
  2. SYMBICORT [Suspect]
     Dosage: 2 PUFFS 320 MG BID
     Route: 055
  3. PROVENTIL [Concomitant]
     Dosage: TWO TIMES A DAY

REACTIONS (2)
  - DRUG DOSE OMISSION [None]
  - DYSPNOEA [None]
